FAERS Safety Report 9759913 (Version 1)
Quarter: 2013Q4

REPORT INFORMATION
  Report Type: Spontaneous
  Country: JP (occurrence: JP)
  Receive Date: 20131216
  Receipt Date: 20131216
  Transmission Date: 20140711
  Serious: Yes (Other)
  Sender: FDA-Public Use
  Company Number: JP-MYLANLABS-2013S1027476

PATIENT
  Age: 68 Year
  Sex: Male

DRUGS (1)
  1. CILOSTAZOL [Suspect]
     Indication: HEART RATE DECREASED
     Route: 048

REACTIONS (3)
  - Atrial fibrillation [Recovered/Resolved]
  - Sinus arrest [Recovered/Resolved]
  - Arrhythmia supraventricular [Recovered/Resolved]
